FAERS Safety Report 9656338 (Version 2)
Quarter: 2013Q4

REPORT INFORMATION
  Report Type: Spontaneous
  Country: US (occurrence: US)
  Receive Date: 20131030
  Receipt Date: 20131206
  Transmission Date: 20140711
  Serious: No
  Sender: FDA-Public Use
  Company Number: US-PFIZER INC-2013307595

PATIENT
  Age: 88 Year
  Sex: Female
  Weight: 49.89 kg

DRUGS (4)
  1. LATANOPROST [Suspect]
     Indication: GLAUCOMA
     Dosage: 1 GTT, 1X/DAY, 1 DROP OU QHS
     Route: 047
     Dates: end: 20120404
  2. LATANOPROST [Suspect]
     Indication: INTRAOCULAR PRESSURE INCREASED
  3. AMLODIPINE/BENAZEPRIL [Concomitant]
     Indication: HYPERTENSION
     Dosage: AMLODIPINE (5MG) / BENAZEPRIL (20MG), UNK
  4. TIMOLOL [Concomitant]
     Dosage: UNK, BID OU

REACTIONS (2)
  - Erythema of eyelid [Recovered/Resolved]
  - Eyelids pruritus [Recovered/Resolved]
